FAERS Safety Report 7322078-8 (Version None)
Quarter: 2011Q1

REPORT INFORMATION
  Report Type: 
  Country: None (occurrence: None)
  Receive Date: 20110228
  Receipt Date: 20110217
  Transmission Date: 20110831
  Serious: Yes (Other)
  Sender: FDA-Public Use
  Company Number: PHHY2010RU77707

PATIENT
  Age: 30 Year
  Sex: Female

DRUGS (1)
  1. SANDIMMUNE [Suspect]
     Dosage: 125 MG, BID

REACTIONS (3)
  - HAEMORRHAGE [None]
  - ABORTION SPONTANEOUS [None]
  - DRUG EXPOSURE DURING PREGNANCY [None]
